FAERS Safety Report 8397630-1 (Version None)
Quarter: 2012Q2

REPORT INFORMATION
  Report Type: 
  Country: None (occurrence: None)
  Receive Date: 20120524
  Receipt Date: 20120514
  Transmission Date: 20120825
  Serious: Yes (Life-Threatening)
  Sender: FDA-Public Use
  Company Number: 201205000028

PATIENT
  Age: 5 Day

DRUGS (1)
  1. INOMAX [Suspect]
     Indication: PULMONARY HYPERTENSION
     Dosage: 20 PPM, CONTINUOUS, INHALATION
     Route: 055
     Dates: start: 20120501

REACTIONS (2)
  - OXYGEN SATURATION DECREASED [None]
  - HEART RATE DECREASED [None]
